FAERS Safety Report 12051152 (Version 1)
Quarter: 2016Q1

REPORT INFORMATION
  Report Type: Spontaneous
  Country: US (occurrence: None)
  Receive Date: 20160208
  Receipt Date: 20160208
  Transmission Date: 20160526
  Serious: Yes (Disabling)
  Sender: FDA-Public Use
  Company Number: None

PATIENT
  Age: 43 Year
  Sex: Female
  Weight: 58.97 kg

DRUGS (11)
  1. INCRUSE ELLIPTA [Suspect]
     Active Substance: UMECLIDINIUM BROMIDE
     Indication: ALPHA-1 ANTI-TRYPSIN DEFICIENCY
     Dosage: INCRUSE ELLIPTA, ONCE DAILY, INHALATION
     Route: 055
     Dates: start: 20160205
  2. INCRUSE ELLIPTA [Suspect]
     Active Substance: UMECLIDINIUM BROMIDE
     Indication: CHRONIC OBSTRUCTIVE PULMONARY DISEASE
     Dosage: INCRUSE ELLIPTA, ONCE DAILY, INHALATION
     Route: 055
     Dates: start: 20160205
  3. ADVAIR HFA [Concomitant]
     Active Substance: FLUTICASONE PROPIONATE\SALMETEROL XINAFOATE
  4. MONTELUKAST [Concomitant]
     Active Substance: MONTELUKAST SODIUM
  5. PROLASTIN [Concomitant]
     Active Substance: .ALPHA.1-PROTEINASE INHIBITOR HUMAN
  6. PROAIR HFA [Concomitant]
     Active Substance: ALBUTEROL SULFATE
  7. ULTRA MEGA WOMEN;S VITAMINS [Concomitant]
  8. POTASSIUM [Concomitant]
     Active Substance: POTASSIUM
  9. GLUCONATE POWDER [Concomitant]
  10. ALTERIL [Concomitant]
  11. CRANBERRY SOFTGEL [Concomitant]

REACTIONS (5)
  - Vision blurred [None]
  - Dyspnoea [None]
  - Head discomfort [None]
  - Dizziness [None]
  - Muscular weakness [None]

NARRATIVE: CASE EVENT DATE: 20160205
